FAERS Safety Report 4584774-5 (Version None)
Quarter: 2005Q1

REPORT INFORMATION
  Report Type: 
  Country: None (occurrence: None)
  Receive Date: 20050217
  Receipt Date: 20050207
  Transmission Date: 20050727
  Serious: Yes (Hospitalization)
  Sender: FDA-Public Use
  Company Number: AT-JNJFOC-20050202129

PATIENT
  Age: 79 Year
  Sex: Female
  Weight: 50 kg

DRUGS (6)
  1. REMICADE [Suspect]
     Indication: CROHN'S DISEASE
     Route: 042
  2. PREDNISOLONE [Concomitant]
     Indication: CROHN'S DISEASE
     Route: 049
  3. FENTANYL [Concomitant]
     Route: 062
  4. DIHYDROCODEINE [Concomitant]
     Route: 049
  5. ALENDRONE ACID [Concomitant]
     Indication: OSTEOPOROSIS
     Route: 049
  6. TRAZODONE [Concomitant]
     Indication: DEPRESSION
     Route: 049

REACTIONS (1)
  - SQUAMOUS CELL CARCINOMA [None]
